FAERS Safety Report 10169450 (Version 1)
Quarter: 2014Q2

REPORT INFORMATION
  Report Type: Spontaneous
  Country: US (occurrence: US)
  Receive Date: 20140513
  Receipt Date: 20140513
  Transmission Date: 20141212
  Serious: No
  Sender: FDA-Public Use
  Company Number: US-PFIZER INC-2014129536

PATIENT
  Age: 45 Year
  Sex: Male
  Weight: 106.58 kg

DRUGS (2)
  1. GABAPENTIN [Suspect]
     Indication: HYPOAESTHESIA
     Dosage: 800 MG, 3X/DAY
  2. METFORMIN [Concomitant]
     Indication: TYPE 2 DIABETES MELLITUS
     Dosage: 1000 MG, DAILY

REACTIONS (1)
  - Drug ineffective [Unknown]
